FAERS Safety Report 20565897 (Version 1)
Quarter: 2022Q1

REPORT INFORMATION
  Report Type: Report from Study
  Country: US (occurrence: US)
  Receive Date: 20220308
  Receipt Date: 20220308
  Transmission Date: 20220423
  Serious: No
  Sender: FDA-Public Use
  Company Number: US-NOVARTISTESTPH-NVSC2022US053320

PATIENT
  Age: 53 Year
  Sex: Female

DRUGS (6)
  1. ENTRESTO [Suspect]
     Active Substance: SACUBITRIL\VALSARTAN
     Indication: Cardiac failure
     Dosage: 1 DOSAGE FORM, BID(24.26 MG)
     Route: 048
     Dates: start: 20220211
  2. ENTRESTO [Suspect]
     Active Substance: SACUBITRIL\VALSARTAN
     Dosage: 1 DOSAGE FORM, BID(49.51 MG)
     Route: 048
     Dates: start: 20220211
  3. CARVEDILOL [Suspect]
     Active Substance: CARVEDILOL
     Indication: Cardiac failure
     Dosage: 1 DOSAGE FORM, QD(3.125 MG)
     Route: 048
     Dates: start: 202201
  4. CARVEDILOL [Suspect]
     Active Substance: CARVEDILOL
     Dosage: 1 DOSAGE FORM, BID (3.125 MG)
     Route: 048
     Dates: start: 202201
  5. FUROSEMIDE [Suspect]
     Active Substance: FUROSEMIDE
     Indication: Product used for unknown indication
     Dosage: 40 MG, QD
     Route: 048
     Dates: start: 202201
  6. POTASSIUM CHLORIDE [Suspect]
     Active Substance: POTASSIUM CHLORIDE
     Indication: Product used for unknown indication
     Dosage: 2 DOSAGE FORM, QD(20 MEQ TWO TABLETS ONCE A DAY)
     Route: 048
     Dates: start: 202201

REACTIONS (3)
  - Heart rate increased [Unknown]
  - Product dose omission issue [Recovered/Resolved]
  - Weight increased [Recovered/Resolved]

NARRATIVE: CASE EVENT DATE: 20220201
